FAERS Safety Report 9420019 (Version 1)
Quarter: 2013Q3

REPORT INFORMATION
  Report Type: Spontaneous
  Country: US (occurrence: US)
  Receive Date: 20130725
  Receipt Date: 20130725
  Transmission Date: 20140515
  Serious: Yes (Hospitalization)
  Sender: FDA-Public Use
  Company Number: US-BAYER-2013-088191

PATIENT
  Age: 35 Year
  Sex: Female

DRUGS (5)
  1. YASMIN [Suspect]
  2. ASMANEX [Concomitant]
     Dosage: 220 MCG, ONE PUFF, BID
  3. SEPTRA [Concomitant]
     Dosage: DOUBLE STRENGTH, ONE TABLET B.I.D. FOR 3 DAYS
  4. SINGULAIR [Concomitant]
     Dosage: 10 MG, DAILY
     Route: 048
  5. PROTONIX [Concomitant]
     Dosage: 40 MG, DAILY
     Route: 048

REACTIONS (3)
  - Pulmonary embolism [Recovered/Resolved]
  - Deep vein thrombosis [Recovering/Resolving]
  - Pelvic venous thrombosis [Recovering/Resolving]
